FAERS Safety Report 15348970 (Version 4)
Quarter: 2018Q4

REPORT INFORMATION
  Report Type: Report from Study
  Country: US (occurrence: US)
  Receive Date: 20180904
  Receipt Date: 20181024
  Transmission Date: 20190204
  Serious: Yes (Death, Life-Threatening, Hospitalization, Other)
  Sender: FDA-Public Use
  Company Number: PHHO2018US009835

PATIENT
  Sex: Female

DRUGS (4)
  1. INC424A [Suspect]
     Active Substance: RUXOLITINIB
     Dosage: 10 MG, BID
     Route: 048
     Dates: start: 20180808, end: 20180817
  2. INC424A [Suspect]
     Active Substance: RUXOLITINIB
     Indication: MALIGNANT PERITONEAL NEOPLASM
     Dosage: 10 MG, UNK
     Route: 048
     Dates: start: 20180718, end: 20180817
  3. PACLITAXEL. [Suspect]
     Active Substance: PACLITAXEL
     Indication: MALIGNANT PERITONEAL NEOPLASM
     Dosage: 140 MG, UNK
     Route: 042
     Dates: start: 20180718, end: 20180808
  4. CARBOPLATIN. [Suspect]
     Active Substance: CARBOPLATIN
     Indication: MALIGNANT PERITONEAL NEOPLASM
     Dosage: 428 MG, UNK
     Route: 042
     Dates: start: 20180718, end: 20180808

REACTIONS (7)
  - Neutrophil count decreased [Not Recovered/Not Resolved]
  - Vomiting [Not Recovered/Not Resolved]
  - Dehydration [Not Recovered/Not Resolved]
  - Sepsis [Fatal]
  - Blood creatinine increased [Not Recovered/Not Resolved]
  - Acute kidney injury [Not Recovered/Not Resolved]
  - Platelet count decreased [Not Recovered/Not Resolved]

NARRATIVE: CASE EVENT DATE: 20180819
